FAERS Safety Report 5106153-4 (Version None)
Quarter: 2006Q3

REPORT INFORMATION
  Report Type: 
  Country: None (occurrence: None)
  Receive Date: 20060918
  Receipt Date: 20060905
  Transmission Date: 20061208
  Serious: Yes (Other)
  Sender: FDA-Public Use
  Company Number: PHBS2006CH13762

PATIENT
  Sex: Male

DRUGS (3)
  1. ZOMETA [Suspect]
     Indication: MULTIPLE MYELOMA
     Route: 042
  2. CHEMOTHERAPEUTICS,OTHER [Concomitant]
     Route: 065
  3. CORTICOSTEROIDS [Concomitant]
     Route: 065

REACTIONS (3)
  - BONE TRIMMING [None]
  - DENTAL TREATMENT [None]
  - OSTEONECROSIS [None]
